FAERS Safety Report 12205754 (Version 1)
Quarter: 2016Q1

REPORT INFORMATION
  Report Type: Other
  Country: GB (occurrence: GB)
  Receive Date: 20160323
  Receipt Date: 20160323
  Transmission Date: 20160526
  Serious: Yes (Hospitalization)
  Sender: FDA-Public Use
  Company Number: GB-MYLANLABS-2016M1011658

PATIENT

DRUGS (12)
  1. DOXYCYCLINE. [Suspect]
     Active Substance: DOXYCYCLINE
     Indication: INFECTION
     Dosage: 200MG STAT DOSE ON DAY 1 THEN 100MG TWO TIMES A DAY
     Route: 048
     Dates: start: 20160211, end: 20160211
  2. APIXABAN [Concomitant]
     Active Substance: APIXABAN
     Dosage: UNK
  3. LEVOFLOXACIN. [Concomitant]
     Active Substance: LEVOFLOXACIN
     Dosage: UNK
  4. VANCOMYCIN [Concomitant]
     Active Substance: VANCOMYCIN
  5. ENOXAPARIN [Concomitant]
     Active Substance: ENOXAPARIN
  6. MEROPENEM. [Concomitant]
     Active Substance: MEROPENEM
     Dosage: UNK
  7. PARACETAMOL [Concomitant]
     Active Substance: ACETAMINOPHEN
     Dosage: UNK
  8. PRAVASTATIN [Concomitant]
     Active Substance: PRAVASTATIN\PRAVASTATIN SODIUM
     Dosage: UNK
  9. RIFAMPICIN [Concomitant]
     Active Substance: RIFAMPIN
     Dosage: UNK
  10. HYDROXYCHLOROQUINE [Concomitant]
     Active Substance: HYDROXYCHLOROQUINE
     Dosage: UNK
  11. MST CONTINUS [Concomitant]
     Active Substance: MORPHINE SULFATE
     Dosage: UNK
  12. SENNA                              /00142201/ [Concomitant]
     Active Substance: SENNA LEAF
     Dosage: UNK

REACTIONS (3)
  - Vomiting [Recovered/Resolved]
  - Oesophageal pain [Recovered/Resolved]
  - Foreign body [Recovered/Resolved]

NARRATIVE: CASE EVENT DATE: 20160211
